FAERS Safety Report 16715770 (Version 1)
Quarter: 2019Q3

REPORT INFORMATION
  Report Type: Spontaneous
  Country: US (occurrence: US)
  Receive Date: 20190819
  Receipt Date: 20190819
  Transmission Date: 20191005
  Serious: No
  Sender: FDA-Public Use
  Company Number: US-MYLANLABS-2019M1064085

PATIENT
  Sex: Female
  Weight: 83 kg

DRUGS (1)
  1. MINOCYCLINE HYDROCHLORIDE EXTENDED-RELEASE TABLETS [Suspect]
     Active Substance: MINOCYCLINE HYDROCHLORIDE
     Indication: PRODUCT USED FOR UNKNOWN INDICATION
     Dosage: UNK
     Route: 065

REACTIONS (3)
  - Swelling [Unknown]
  - Rash [Unknown]
  - Urticaria [Unknown]
